FAERS Safety Report 17681118 (Version 5)
Quarter: 2020Q3

REPORT INFORMATION
  Report Type: Report from Study
  Country: FR (occurrence: FR)
  Receive Date: 20200417
  Receipt Date: 20200713
  Transmission Date: 20201102
  Serious: Yes (Other)
  Sender: FDA-Public Use
  Company Number: FR-SA-2020SA098803

PATIENT

DRUGS (8)
  1. RACECADOTRIL [Concomitant]
     Active Substance: RACECADOTRIL
     Indication: PRE-EXISTING DISEASE
     Dosage: 1 DF, TID
     Route: 048
     Dates: start: 20200402, end: 20200407
  2. CEFTRIAXONE. [Concomitant]
     Active Substance: CEFTRIAXONE
     Indication: PRE-EXISTING DISEASE
     Dosage: 2 G, QD
     Route: 042
     Dates: start: 20200403, end: 20200408
  3. LEVOTHYROX [Concomitant]
     Active Substance: LEVOTHYROXINE
     Indication: HYPOTHYROIDISM
     Dosage: 100 UG, QD
     Route: 048
     Dates: start: 20200403
  4. SARILUMAB [Suspect]
     Active Substance: SARILUMAB
     Indication: COVID-19
     Dosage: 1 BAG AT INFUSION RATE: 100 ML/H , 1X
     Route: 042
     Dates: start: 20200403, end: 20200403
  5. NOVORAPID [Concomitant]
     Active Substance: INSULIN ASPART
     Indication: TYPE 2 DIABETES MELLITUS
     Dosage: 10 U, QD
     Route: 042
     Dates: start: 20200403, end: 20200404
  6. GLICLAZIDE [Concomitant]
     Active Substance: GLICLAZIDE
     Indication: TYPE 2 DIABETES MELLITUS
     Dosage: 30 MG, QD
     Route: 048
     Dates: start: 20200404, end: 20200404
  7. CETIRIZINE [Concomitant]
     Active Substance: CETIRIZINE HYDROCHLORIDE
     Dosage: 10 MG, QD
     Route: 048
     Dates: start: 20200405, end: 20200407
  8. PARACETAMOL [Concomitant]
     Active Substance: ACETAMINOPHEN
     Indication: PRE-EXISTING DISEASE
     Dosage: 1 DF OCCASIONAL
     Route: 042
     Dates: start: 20200403, end: 20200408

REACTIONS (1)
  - Neutropenia [Recovered/Resolved]

NARRATIVE: CASE EVENT DATE: 20200406
